FAERS Safety Report 10712569 (Version 1)
Quarter: 2015Q1

REPORT INFORMATION
  Report Type: Spontaneous
  Country: US (occurrence: None)
  Receive Date: 20150113
  Receipt Date: 20150113
  Transmission Date: 20150721
  Serious: Yes (Hospitalization)
  Sender: FDA-Public Use
  Company Number: 201501025

PATIENT
  Age: 66 Year
  Sex: Male

DRUGS (1)
  1. XIAFLEX [Suspect]
     Active Substance: COLLAGENASE CLOSTRIDIUM HISTOLYTICUM
     Indication: PEYRONIE^S DISEASE
     Dosage: INTRALESIONAL

REACTIONS (3)
  - Penile haemorrhage [None]
  - Internal haemorrhage [None]
  - Penile contusion [None]

NARRATIVE: CASE EVENT DATE: 201412
